FAERS Safety Report 25154271 (Version 3)
Quarter: 2025Q3

REPORT INFORMATION
  Report Type: Report from Study
  Country: US (occurrence: US)
  Receive Date: 20250403
  Receipt Date: 20250801
  Transmission Date: 20251020
  Serious: No
  Sender: SUNOVION
  Company Number: US-SUMITOMO PHARMA SWITZERLAND GMBH-2025SPA002829

PATIENT

DRUGS (2)
  1. ORGOVYX [Suspect]
     Active Substance: RELUGOLIX
     Indication: Prostate cancer
     Dosage: 120 MG, QD
     Route: 048
     Dates: start: 20250219
  2. HYDROCHLOROTHIAZIDE [Suspect]
     Active Substance: HYDROCHLOROTHIAZIDE
     Route: 065

REACTIONS (9)
  - Rotator cuff syndrome [Unknown]
  - Joint dislocation [Unknown]
  - Fall [Unknown]
  - Blood sodium decreased [Unknown]
  - Flatulence [Recovered/Resolved]
  - Blood iron decreased [Unknown]
  - Somnolence [Unknown]
  - Fatigue [Unknown]
  - Incorrect dose administered [Unknown]
